FAERS Safety Report 9530617 (Version 3)
Quarter: 2013Q3

REPORT INFORMATION
  Report Type: Report from Study
  Country: CA (occurrence: CA)
  Receive Date: 20130918
  Receipt Date: 20130919
  Transmission Date: 20140515
  Serious: Yes (Hospitalization)
  Sender: FDA-Public Use
  Company Number: CA-ROCHE-1107891

PATIENT
  Age: 71 Year
  Sex: Male
  Weight: 88.6 kg

DRUGS (5)
  1. ACTEMRA [Suspect]
     Indication: RHEUMATOID ARTHRITIS
     Route: 042
     Dates: start: 20120627
  2. PANTOPRAZOL [Concomitant]
  3. FOSAVANCE [Concomitant]
  4. HUMIRA [Concomitant]
     Route: 065
     Dates: end: 20120521
  5. METFORMIN [Concomitant]

REACTIONS (7)
  - Cholelithiasis [Unknown]
  - Arthralgia [Not Recovered/Not Resolved]
  - Nasopharyngitis [Recovering/Resolving]
  - Influenza [Recovered/Resolved]
  - Joint effusion [Recovered/Resolved]
  - Pain [Recovered/Resolved]
  - Weight increased [Not Recovered/Not Resolved]
